FAERS Safety Report 13776553 (Version 1)
Quarter: 2017Q3

REPORT INFORMATION
  Report Type: Spontaneous
  Country: US (occurrence: US)
  Receive Date: 20170720
  Receipt Date: 20170720
  Transmission Date: 20171127
  Serious: Yes (Death)
  Sender: FDA-Public Use
  Company Number: US-ACTELION-A-NJ2016-143508

PATIENT
  Age: 63 Year
  Sex: Female

DRUGS (12)
  1. SENSIPAR [Concomitant]
     Active Substance: CINACALCET HYDROCHLORIDE
  2. VITAMIN D [Concomitant]
     Active Substance: CHOLECALCIFEROL
  3. OPSUMIT [Suspect]
     Active Substance: MACITENTAN
     Indication: PULMONARY ARTERIAL HYPERTENSION
     Dosage: 10 MG, QD
     Route: 048
     Dates: start: 20150625
  4. LISINOPRIL. [Concomitant]
     Active Substance: LISINOPRIL
  5. SILDENAFIL. [Concomitant]
     Active Substance: SILDENAFIL
  6. LORAZEPAM. [Concomitant]
     Active Substance: LORAZEPAM
  7. CLONIDINE. [Concomitant]
     Active Substance: CLONIDINE
  8. LOSARTAN. [Concomitant]
     Active Substance: LOSARTAN
  9. METOPROLOL SUCCINATE. [Concomitant]
     Active Substance: METOPROLOL SUCCINATE
  10. HYDRALAZINE [Concomitant]
     Active Substance: HYDRALAZINE HYDROCHLORIDE
  11. OMEPRAZOLE. [Concomitant]
     Active Substance: OMEPRAZOLE
  12. FOSRENOL [Concomitant]
     Active Substance: LANTHANUM CARBONATE

REACTIONS (2)
  - Headache [Not Recovered/Not Resolved]
  - Death [Fatal]

NARRATIVE: CASE EVENT DATE: 20160904
